FAERS Safety Report 8395047-7 (Version None)
Quarter: 2012Q2

REPORT INFORMATION
  Report Type: 
  Country: None (occurrence: None)
  Receive Date: 20120524
  Receipt Date: 20120514
  Transmission Date: 20120825
  Serious: Yes (Hospitalization)
  Sender: FDA-Public Use
  Company Number: UTC-017711

PATIENT
  Age: 70 Year
  Sex: Female
  Weight: 55.9 kg

DRUGS (6)
  1. REMODULIN [Suspect]
  2. METOPROLOL TARTRATE [Concomitant]
  3. REMODULIN [Suspect]
     Indication: COR PULMONALE CHRONIC
     Dosage: SEE IMAGE
     Route: 058
     Dates: start: 20120425
  4. REMODULIN [Suspect]
     Indication: COR PULMONALE CHRONIC
     Dosage: SEE IMAGE
     Route: 058
     Dates: start: 20120301
  5. DIURETICS (DIURETICS) [Concomitant]
  6. AMLODIPINE [Concomitant]

REACTIONS (5)
  - PAIN IN JAW [None]
  - ASCITES [None]
  - DYSPNOEA [None]
  - PAIN IN EXTREMITY [None]
  - OEDEMA [None]
